FAERS Safety Report 11788404 (Version 22)
Quarter: 2020Q1

REPORT INFORMATION
  Report Type: Spontaneous
  Country: CA (occurrence: CA)
  Receive Date: 20151201
  Receipt Date: 20200227
  Transmission Date: 20200409
  Serious: Yes (Hospitalization, Other)
  Sender: FDA-Public Use
  Company Number: CA-ROCHE-1670711

PATIENT
  Age: 11 Year
  Sex: Male

DRUGS (21)
  1. XOLAIR [Suspect]
     Active Substance: OMALIZUMAB
     Dosage: 375 MG, BIW
     Route: 058
  2. VENTOLIN [Concomitant]
     Active Substance: ALBUTEROL SULFATE
     Dosage: ROUGHLY 40 PUFFS PER DAY (1 INHALER PER WEEK)
     Route: 055
  3. VENTOLIN [Concomitant]
     Active Substance: ALBUTEROL SULFATE
     Dosage: 40 PUFFS
     Route: 065
  4. XOLAIR [Suspect]
     Active Substance: OMALIZUMAB
     Route: 058
     Dates: start: 20200214
  5. VENTOLIN [Concomitant]
     Active Substance: ALBUTEROL SULFATE
     Indication: ASTHMA
     Dosage: PRN
     Route: 055
  6. SYMBICORT [Concomitant]
     Active Substance: BUDESONIDE\FORMOTEROL FUMARATE DIHYDRATE
     Indication: ASTHMA
     Dosage: 2 DF (PUFFS).
     Route: 055
  7. XOLAIR [Suspect]
     Active Substance: OMALIZUMAB
     Route: 058
     Dates: start: 20170131, end: 20170131
  8. SYMBICORT [Concomitant]
     Active Substance: BUDESONIDE\FORMOTEROL FUMARATE DIHYDRATE
     Dosage: 2 PUFFS
     Route: 065
  9. PREDNISONE. [Concomitant]
     Active Substance: PREDNISONE
     Dosage: 30 MG, BID
     Route: 065
  10. MONTELUKAST [Concomitant]
     Active Substance: MONTELUKAST SODIUM
     Indication: PRODUCT USED FOR UNKNOWN INDICATION
     Dosage: 15 MG, QD
     Route: 065
  11. AVAMYS [Concomitant]
     Active Substance: FLUTICASONE FUROATE
     Indication: PRODUCT USED FOR UNKNOWN INDICATION
     Route: 065
  12. XOLAIR [Suspect]
     Active Substance: OMALIZUMAB
     Indication: ASTHMA
     Route: 058
     Dates: start: 20150311
  13. XOLAIR [Suspect]
     Active Substance: OMALIZUMAB
     Dosage: UNK
     Route: 058
     Dates: start: 20151210
  14. XOLAIR [Suspect]
     Active Substance: OMALIZUMAB
     Route: 058
     Dates: start: 20191018
  15. XOLAIR [Suspect]
     Active Substance: OMALIZUMAB
     Route: 058
     Dates: start: 20200221
  16. PREDNISONE. [Concomitant]
     Active Substance: PREDNISONE
     Dosage: (3 COURSES)
     Route: 065
  17. EPIPEN [Concomitant]
     Active Substance: EPINEPHRINE
     Indication: PRODUCT USED FOR UNKNOWN INDICATION
     Dosage: PRN
     Route: 065
  18. XOLAIR [Suspect]
     Active Substance: OMALIZUMAB
     Dosage: UNK
     Route: 058
     Dates: start: 20160315
  19. XOLAIR [Suspect]
     Active Substance: OMALIZUMAB
     Dosage: UNK
     Route: 058
     Dates: start: 20161223
  20. XOLAIR [Suspect]
     Active Substance: OMALIZUMAB
     Dosage: UNK
     Route: 058
     Dates: start: 20170117
  21. PREDNISONE. [Concomitant]
     Active Substance: PREDNISONE
     Indication: PRODUCT USED FOR UNKNOWN INDICATION
     Dosage: (5-6 COURSES)
     Route: 065

REACTIONS (28)
  - Asthma [Recovering/Resolving]
  - Head injury [Unknown]
  - Eosinophilia [Unknown]
  - Inappropriate schedule of product administration [Unknown]
  - Rhinitis [Unknown]
  - Middle insomnia [Unknown]
  - Nasal congestion [Not Recovered/Not Resolved]
  - Upper respiratory tract infection [Unknown]
  - Tachycardia [Unknown]
  - Malaise [Unknown]
  - Forced expiratory volume decreased [Unknown]
  - Concussion [Unknown]
  - Pulmonary function test decreased [Unknown]
  - Eczema [Recovering/Resolving]
  - Mean cell volume decreased [Unknown]
  - Eosinophil count increased [Unknown]
  - Red cell distribution width increased [Unknown]
  - Weight increased [Unknown]
  - Dyspnoea [Unknown]
  - Eosinophilic oesophagitis [Recovering/Resolving]
  - Wheezing [Unknown]
  - Anaphylactic reaction [Unknown]
  - Cough [Unknown]
  - Blood immunoglobulin E increased [Unknown]
  - Blood uric acid decreased [Unknown]
  - Tonsillar disorder [Unknown]
  - Microcytosis [Unknown]
  - Snoring [Unknown]

NARRATIVE: CASE EVENT DATE: 20151124
